FAERS Safety Report 10011089 (Version 1)
Quarter: 2014Q1

REPORT INFORMATION
  Report Type: Spontaneous
  Country: DE (occurrence: JP)
  Receive Date: 20140314
  Receipt Date: 20140314
  Transmission Date: 20141002
  Serious: Yes (Other)
  Sender: FDA-Public Use
  Company Number: JP-BRACCO-007902

PATIENT
  Age: 35 Year
  Sex: Female

DRUGS (2)
  1. HEPARIN [Concomitant]
     Route: 042
  2. IOPAMIRON [Suspect]
     Indication: ANGIOGRAM CEREBRAL
     Route: 042

REACTIONS (3)
  - Maternal exposure during pregnancy [Recovered/Resolved]
  - Caesarean section [Recovered/Resolved]
  - Premature delivery [Recovered/Resolved]
